FAERS Safety Report 6775742-3 (Version None)
Quarter: 2010Q2

REPORT INFORMATION
  Report Type: 
  Country: None (occurrence: None)
  Receive Date: 20100617
  Receipt Date: 20100412
  Transmission Date: 20101027
  Serious: Yes (Other)
  Sender: FDA-Public Use
  Company Number: CHPA2010SE06583

PATIENT
  Age: 67 Year
  Sex: Female

DRUGS (1)
  1. NICOTINELL COATED GUM 2 MG MINT (NCH) [Suspect]
     Indication: SMOKING CESSATION THERAPY
     Dosage: UNK,UNK
     Route: 048

REACTIONS (5)
  - ACCIDENT [None]
  - INTENTIONAL DRUG MISUSE [None]
  - LEG AMPUTATION [None]
  - MALAISE [None]
  - NICOTINE DEPENDENCE [None]
